FAERS Safety Report 20049919 (Version 1)
Quarter: 2021Q4

REPORT INFORMATION
  Report Type: Spontaneous
  Country: CN (occurrence: CN)
  Receive Date: 20211109
  Receipt Date: 20211109
  Transmission Date: 20220303
  Serious: Yes (Hospitalization)
  Sender: FDA-Public Use
  Company Number: CN-BAYER-2021A245917

PATIENT
  Age: 65 Year
  Sex: Female
  Weight: 42 kg

DRUGS (3)
  1. STIVARGA [Suspect]
     Active Substance: REGORAFENIB
     Indication: Rectal cancer stage IV
     Dosage: 120 MG, QD
     Route: 048
     Dates: start: 20210926
  2. STIVARGA [Suspect]
     Active Substance: REGORAFENIB
     Indication: Metastases to liver
     Dosage: 160 MG, QD
     Route: 048
     Dates: end: 20211015
  3. STIVARGA [Suspect]
     Active Substance: REGORAFENIB
     Indication: Targeted cancer therapy

REACTIONS (4)
  - Oropharyngeal discomfort [None]
  - Rash [Recovering/Resolving]
  - Asthenia [None]
  - Off label use [None]

NARRATIVE: CASE EVENT DATE: 20210926
